FAERS Safety Report 24376280 (Version 3)
Quarter: 2024Q4

REPORT INFORMATION
  Report Type: Spontaneous
  Country: US (occurrence: US)
  Receive Date: 20240930
  Receipt Date: 20241121
  Transmission Date: 20250115
  Serious: No
  Sender: AJANTA PHARMA USA INC
  Company Number: US-AJANTA-2024AJA00154

PATIENT
  Age: 76 Year
  Sex: Male
  Weight: 182 kg

DRUGS (7)
  1. SILDENAFIL [Suspect]
     Active Substance: SILDENAFIL
     Indication: Erectile dysfunction
     Route: 048
     Dates: start: 20240809, end: 20240909
  2. SILDENAFIL [Suspect]
     Active Substance: SILDENAFIL
     Indication: Benign prostatic hyperplasia
  3. SILDENAFIL [Suspect]
     Active Substance: SILDENAFIL
     Indication: Transurethral prostatectomy
  4. SILDENAFIL [Suspect]
     Active Substance: SILDENAFIL
     Indication: Brachytherapy to prostate
  5. Dobive [Concomitant]
  6. EDARBI [Concomitant]
     Active Substance: AZILSARTAN KAMEDOXOMIL
     Dosage: 40 M
  7. AMLODIPINE BESYLATE [Concomitant]
     Active Substance: AMLODIPINE BESYLATE

REACTIONS (9)
  - Sleep apnoea syndrome [Unknown]
  - Drug ineffective [Unknown]
  - Dry eye [Unknown]
  - Abdominal pain upper [Unknown]
  - Dizziness [Unknown]
  - Headache [Unknown]
  - Therapeutic response changed [Unknown]
  - Product substitution issue [Unknown]
  - Product use in unapproved indication [Unknown]

NARRATIVE: CASE EVENT DATE: 20240101
